FAERS Safety Report 6252118-9 (Version None)
Quarter: 2009Q2

REPORT INFORMATION
  Report Type: 
  Country: None (occurrence: None)
  Receive Date: 20090630
  Receipt Date: 20050313
  Transmission Date: 20091009
  Serious: Yes (Hospitalization)
  Sender: FDA-Public Use
  Company Number: US-ROCHE-639076

PATIENT
  Sex: Male

DRUGS (8)
  1. ENFUVIRTIDE [Suspect]
     Indication: HIV INFECTION
     Route: 065
     Dates: start: 20040429, end: 20080814
  2. SUSTIVA [Concomitant]
     Dosage: FREQ: QD
     Dates: start: 20010705, end: 20040514
  3. VIDEX EC [Concomitant]
     Dosage: FREQ: QD
     Dates: start: 20010705, end: 20040514
  4. VIREAD [Concomitant]
     Dosage: FREQ: QD
     Dates: start: 20010705, end: 20040514
  5. VIREAD [Concomitant]
     Dosage: FREQ: QD
     Dates: start: 20040124, end: 20080814
  6. EMTRIVA [Concomitant]
     Dosage: FREQ: QD
     Dates: start: 20040624, end: 20040722
  7. EPIVIR [Concomitant]
     Dates: start: 20040722, end: 20080814
  8. FLAGYL [Concomitant]
     Dosage: FREQ: Q8 HR
     Dates: start: 20040729, end: 20040807

REACTIONS (1)
  - GASTROINTESTINAL HAEMORRHAGE [None]
